FAERS Safety Report 10494150 (Version 2)
Quarter: 2014Q4

REPORT INFORMATION
  Report Type: Report from Study
  Country: CN (occurrence: CN)
  Receive Date: 20141003
  Receipt Date: 20141003
  Transmission Date: 20150528
  Serious: Yes (Hospitalization, Other)
  Sender: FDA-Public Use
  Company Number: CN-BAYER-2014-065826

PATIENT
  Age: 61 Year
  Sex: Male

DRUGS (2)
  1. NEXAVAR [Suspect]
     Active Substance: SORAFENIB
     Indication: HEPATOCELLULAR CARCINOMA
     Dosage: UNK DOSE
     Dates: start: 20140627, end: 20140905
  2. NEXAVAR [Suspect]
     Active Substance: SORAFENIB
     Indication: HEPATOCELLULAR CARCINOMA
     Dosage: 400 MG, BID
     Route: 048
     Dates: start: 20140414, end: 20140626

REACTIONS (10)
  - Palmar-plantar erythrodysaesthesia syndrome [None]
  - Abdominal distension [None]
  - Ascites [None]
  - Diarrhoea [None]
  - Jaundice [None]
  - Blood bilirubin unconjugated increased [None]
  - Liver function test abnormal [None]
  - Blood bilirubin increased [None]
  - Bilirubin conjugated increased [None]
  - Asthenia [None]

NARRATIVE: CASE EVENT DATE: 20140504
